FAERS Safety Report 9826104 (Version 1)
Quarter: 2013Q4

REPORT INFORMATION
  Report Type: Spontaneous
  Country: US (occurrence: None)
  Receive Date: 20131108
  Receipt Date: 20131108
  Transmission Date: 20140711
  Serious: Yes (Disabling, Other)
  Sender: FDA-Public Use
  Company Number: 2012033122

PATIENT
  Sex: Male
  Weight: 113.4 kg

DRUGS (1)
  1. MONONINE [Suspect]
     Indication: FACTOR IX DEFICIENCY
     Dosage: (?? MAR-2012 INTRAVENOUS (NOT OTHER SPECIFIED)
     Route: 042
     Dates: start: 201203

REACTIONS (1)
  - Drug ineffective [None]
